FAERS Safety Report 6030303-9 (Version None)
Quarter: 2009Q1

REPORT INFORMATION
  Report Type: 
  Country: None (occurrence: None)
  Receive Date: 20090107
  Receipt Date: 20081223
  Transmission Date: 20090719
  Serious: Yes (Other)
  Sender: FDA-Public Use
  Company Number: NO-PFIZER INC-2008097042

PATIENT

DRUGS (4)
  1. ATORVASTATIN CALCIUM [Suspect]
     Indication: HYPERLIPIDAEMIA
     Dosage: 10 MG, UNK
  2. ATORVASTATIN CALCIUM [Suspect]
     Dosage: 20 MG, UNK
  3. ATORVASTATIN CALCIUM [Suspect]
     Dosage: 40 MG, UNK
  4. PRAVASTATIN SODIUM [Suspect]

REACTIONS (3)
  - DIPLOPIA [None]
  - EYELID PTOSIS [None]
  - MYASTHENIA GRAVIS [None]
